FAERS Safety Report 5219972-0 (Version None)
Quarter: 2007Q1

REPORT INFORMATION
  Report Type: 
  Country: None (occurrence: None)
  Receive Date: 20061117
  Receipt Date: 20060804
  Transmission Date: 20070707
  Serious: Yes (Other)
  Sender: FDA-Public Use
  Company Number: SPV1-2006-00349

PATIENT

DRUGS (1)
  1. CARBAMAZEPINE [Suspect]

REACTIONS (2)
  - PYREXIA [None]
  - RASH GENERALISED [None]
